FAERS Safety Report 12270220 (Version 1)
Quarter: 2016Q2

REPORT INFORMATION
  Report Type: Spontaneous
  Country: None (occurrence: US)
  Receive Date: 20160415
  Receipt Date: 20160415
  Transmission Date: 20160815
  Serious: Yes (Other)
  Sender: FDA-Public Use
  Company Number: US-ZYDUS-008608

PATIENT
  Sex: Female

DRUGS (1)
  1. VALPROIC ACID. [Suspect]
     Active Substance: VALPROIC ACID
     Indication: PRODUCT USED FOR UNKNOWN INDICATION

REACTIONS (5)
  - Mental disorder [Recovering/Resolving]
  - Eating disorder [Recovering/Resolving]
  - Seizure [Recovered/Resolved]
  - Obesity [Unknown]
  - Depression [Recovering/Resolving]
